FAERS Safety Report 8540081-7 (Version None)
Quarter: 2012Q3

REPORT INFORMATION
  Report Type: 
  Country: None (occurrence: None)
  Receive Date: 20120713
  Receipt Date: 20120629
  Transmission Date: 20120928
  Serious: Yes (Other)
  Sender: FDA-Public Use
  Company Number: NGX_01152_2012

PATIENT
  Age: 64 Year
  Sex: Male
  Weight: 85 kg

DRUGS (3)
  1. MORPHINE [Suspect]
     Indication: PRODUCT USED FOR UNKNOWN INDICATION
     Dosage: (DF [ONLY OCCASSIONALLY]), (DF [40 MG X 1])
     Dates: start: 20120101
  2. MORPHINE [Suspect]
     Indication: PRODUCT USED FOR UNKNOWN INDICATION
     Dosage: (DF [ONLY OCCASSIONALLY]), (DF [40 MG X 1])
     Dates: end: 20120504
  3. QUTENZA [Suspect]
     Indication: POST HERPETIC NEURALGIA
     Dosage: TOPICAL
     Route: 061
     Dates: start: 20120504, end: 20120504

REACTIONS (3)
  - POST HERPETIC NEURALGIA [None]
  - CONDITION AGGRAVATED [None]
  - PRODUCT USED FOR UNKNOWN INDICATION [None]
